FAERS Safety Report 7009964-3 (Version None)
Quarter: 2010Q3

REPORT INFORMATION
  Report Type: 
  Country: None (occurrence: None)
  Receive Date: 20100923
  Receipt Date: 20100916
  Transmission Date: 20110219
  Serious: Yes (Death)
  Sender: FDA-Public Use
  Company Number: JP-SANOFI-AVENTIS-2010SA047014

PATIENT
  Age: 68 Year
  Sex: Male
  Weight: 54 kg

DRUGS (7)
  1. PLAVIX [Suspect]
     Indication: ACUTE MYOCARDIAL INFARCTION
     Route: 048
     Dates: start: 20090629
  2. ASPIRIN [Concomitant]
     Indication: ACUTE MYOCARDIAL INFARCTION
     Route: 048
     Dates: start: 20090630
  3. OLMETEC [Concomitant]
     Route: 048
     Dates: start: 20090630
  4. GASTER D [Concomitant]
     Indication: PROPHYLAXIS
     Route: 048
     Dates: start: 20090630
  5. NOVORAPID [Concomitant]
     Dosage: 4 IU IN THE MORNING, 8 IU AT NOON AND 4 IU IN THE EVENING.
     Dates: start: 20090709
  6. INSULIN DETEMIR [Concomitant]
     Dosage: 8 IU BEFORE SLEEP.
     Dates: start: 20090709
  7. ALL OTHER THERAPEUTIC PRODUCTS [Concomitant]
     Route: 048
     Dates: start: 20091215

REACTIONS (1)
  - DEATH [None]
